FAERS Safety Report 10015184 (Version 1)
Quarter: 2014Q1

REPORT INFORMATION
  Report Type: Spontaneous
  Country: KR (occurrence: KR)
  Receive Date: 20140317
  Receipt Date: 20140317
  Transmission Date: 20141002
  Serious: Yes (Other)
  Sender: FDA-Public Use
  Company Number: KR-JNJFOC-20140306945

PATIENT
  Sex: 0

DRUGS (4)
  1. INFLIXIMAB, RECOMBINANT [Suspect]
     Indication: RHEUMATOID ARTHRITIS
     Route: 042
  2. INFLIXIMAB, RECOMBINANT [Suspect]
     Indication: ANKYLOSING SPONDYLITIS
     Route: 042
  3. INFLIXIMAB, RECOMBINANT [Suspect]
     Indication: COLITIS ULCERATIVE
     Route: 042
  4. INFLIXIMAB, RECOMBINANT [Suspect]
     Indication: CROHN^S DISEASE
     Route: 042

REACTIONS (2)
  - Infection [Unknown]
  - Tuberculosis [Unknown]
